FAERS Safety Report 9204893 (Version 1)
Quarter: 2013Q2

REPORT INFORMATION
  Report Type: Spontaneous
  Country: US (occurrence: US)
  Receive Date: 20130402
  Receipt Date: 20130402
  Transmission Date: 20140414
  Serious: No
  Sender: FDA-Public Use
  Company Number: US-ASTRAZENECA-2012SE23209

PATIENT
  Age: 55 Year
  Sex: Female

DRUGS (15)
  1. ANASTROZOLE [Suspect]
     Route: 048
  2. NEXIUM [Suspect]
     Route: 048
  3. PRILOSEC [Suspect]
     Route: 048
  4. PRILOSEC [Suspect]
     Dosage: GENERIC
     Route: 048
  5. LOTRONEX [Concomitant]
  6. ZYTREC [Concomitant]
  7. EXEMESTANE [Concomitant]
  8. CITALOPRAM [Concomitant]
  9. B COMPLEX [Concomitant]
  10. CALCIUM [Concomitant]
  11. OMEGA 3,6,9 [Concomitant]
  12. RED YEAST [Concomitant]
  13. MULFI [Concomitant]
  14. RELAFEX [Concomitant]
  15. COLLUIN [Concomitant]

REACTIONS (3)
  - Pain in extremity [Unknown]
  - Arthralgia [Unknown]
  - Drug ineffective [Unknown]
